FAERS Safety Report 12957669 (Version 3)
Quarter: 2016Q4

REPORT INFORMATION
  Report Type: Report from Study
  Country: US (occurrence: US)
  Receive Date: 20161118
  Receipt Date: 20161212
  Transmission Date: 20170207
  Serious: Yes (Hospitalization, Other)
  Sender: FDA-Public Use
  Company Number: US-MALLINCKRODT-T201605752

PATIENT
  Age: 68 Year
  Sex: Female

DRUGS (11)
  1. REPOSITORY CORTICOTROPIN INJECTION [Suspect]
     Active Substance: CORTICOTROPIN
     Dosage: 80 UNITS TWICE WEEKLY FOR 12 WEEKS
  2. VALIUM [Concomitant]
     Active Substance: DIAZEPAM
     Dosage: 5 OR 10 MG TID
  3. DEMEROL [Concomitant]
     Active Substance: MEPERIDINE HYDROCHLORIDE
     Dosage: 100 MG; BID
  4. MORPHINE [Concomitant]
     Active Substance: MORPHINE
  5. PLAQUENIL [Concomitant]
     Active Substance: HYDROXYCHLOROQUINE SULFATE
  6. NUCYNTA [Concomitant]
     Active Substance: TAPENTADOL HYDROCHLORIDE
  7. REPOSITORY CORTICOTROPIN INJECTION [Suspect]
     Active Substance: CORTICOTROPIN
     Indication: RHEUMATOID ARTHRITIS
     Dosage: 120 UNITS/1.5 ML TWICE WEEKLY
     Route: 058
     Dates: start: 20150607, end: 20161026
  8. GABAPENTIN. [Concomitant]
     Active Substance: GABAPENTIN
     Dosage: TWO TABLETS; 3X/DAY
  9. PROTONIX [Concomitant]
     Active Substance: PANTOPRAZOLE SODIUM
  10. REPOSITORY CORTICOTROPIN INJECTION [Suspect]
     Active Substance: CORTICOTROPIN
     Dosage: 0.5ML; TWICE WEELY
     Route: 030
     Dates: start: 201504
  11. ACTEMRA [Concomitant]
     Active Substance: TOCILIZUMAB
     Dosage: ONCE PER MONTH
     Dates: start: 2014

REACTIONS (39)
  - Dehydration [Not Recovered/Not Resolved]
  - Troponin increased [Not Recovered/Not Resolved]
  - Pulmonary mass [Not Recovered/Not Resolved]
  - Amnesia [Recovering/Resolving]
  - Urinary tract infection [Not Recovered/Not Resolved]
  - Pyrexia [Recovering/Resolving]
  - Weight decreased [Not Recovered/Not Resolved]
  - Wheezing [Not Recovered/Not Resolved]
  - Peripheral swelling [Not Recovered/Not Resolved]
  - Hypersensitivity [Unknown]
  - Haematemesis [Recovering/Resolving]
  - Oropharyngeal pain [Recovering/Resolving]
  - Injection site pain [Unknown]
  - Nausea [Not Recovered/Not Resolved]
  - Chest pain [Not Recovered/Not Resolved]
  - Pancreatitis [Unknown]
  - Oxygen saturation decreased [Not Recovered/Not Resolved]
  - Discomfort [Unknown]
  - Musculoskeletal pain [Not Recovered/Not Resolved]
  - Renal impairment [Not Recovered/Not Resolved]
  - Blood creatinine increased [Not Recovered/Not Resolved]
  - Ligament sprain [Not Recovered/Not Resolved]
  - Glassy eyes [Recovering/Resolving]
  - Emphysema [Not Recovered/Not Resolved]
  - Pain in extremity [Not Recovered/Not Resolved]
  - Malaise [Unknown]
  - Arthralgia [Not Recovered/Not Resolved]
  - Oesophageal pain [Recovering/Resolving]
  - Heart rate increased [Not Recovered/Not Resolved]
  - Drug ineffective [Not Recovered/Not Resolved]
  - Diarrhoea [Recovering/Resolving]
  - Pneumonia [Recovering/Resolving]
  - Injection site bruising [Unknown]
  - Back pain [Not Recovered/Not Resolved]
  - Cough [Not Recovered/Not Resolved]
  - Inflammation [Not Recovered/Not Resolved]
  - Insomnia [Unknown]
  - Oesophageal mass [Not Recovered/Not Resolved]
  - Blood pressure fluctuation [Not Recovered/Not Resolved]

NARRATIVE: CASE EVENT DATE: 2016
